FAERS Safety Report 5767808-1 (Version None)
Quarter: 2008Q2

REPORT INFORMATION
  Report Type: 
  Country: None (occurrence: None)
  Receive Date: 20080612
  Receipt Date: 20080605
  Transmission Date: 20081010
  Serious: Yes (Disabling)
  Sender: FDA-Public Use
  Company Number: PT-ASTRAZENECA-2008AC01453

PATIENT
  Age: 16835 Day
  Sex: Female
  Weight: 55 kg

DRUGS (4)
  1. CRESTOR [Suspect]
     Indication: HYPERCHOLESTEROLAEMIA
     Route: 048
     Dates: start: 20080327, end: 20080327
  2. FORMOTEROL FUMARATE [Concomitant]
     Indication: ASTHMA
     Route: 055
  3. FLUTICASONE PROPRIONATE [Concomitant]
     Indication: ASTHMA
     Route: 055
  4. LOSARTAN POTASSIUM [Concomitant]
     Indication: HYPERTENSION
     Route: 048
     Dates: start: 20080220

REACTIONS (4)
  - PHARYNGEAL OEDEMA [None]
  - PHARYNGITIS [None]
  - PRURITUS [None]
  - URTICARIA [None]
